FAERS Safety Report 10606217 (Version 1)
Quarter: 2014Q4

REPORT INFORMATION
  Report Type: Spontaneous
  Country: US (occurrence: None)
  Receive Date: 20141121
  Receipt Date: 20141121
  Transmission Date: 20150529
  Serious: Yes (Hospitalization, Other)
  Sender: FDA-Public Use
  Company Number: US-ZYDUS-005402

PATIENT
  Age: 31 Year
  Sex: Female

DRUGS (4)
  1. TRAZODONE [Suspect]
     Active Substance: TRAZODONE HYDROCHLORIDE
  2. HALOPERIDOL (HALOPERIDOL) (HALOPERIDOL) [Suspect]
     Active Substance: HALOPERIDOL
     Indication: PSYCHOTHERAPY
     Dosage: 1.00 TIMES PER-6.0 HOURS
     Route: 042
  3. ZIPRASIDONE HYDROCHLORIDE (ZIPRASIDONE HYDROCHLORIDE) [Suspect]
     Active Substance: ZIPRASIDONE HYDROCHLORIDE
     Dosage: 1.00 TIMES PER-12.0 HOURS
     Route: 048
  4. FUROSEMIDE (FUROSEMIDE) [Suspect]
     Active Substance: FUROSEMIDE
     Dosage: NOT OTHERWISE SPECIFIED
     Route: 042

REACTIONS (6)
  - Pulmonary hypertension [None]
  - Mental status changes [None]
  - Respiratory acidosis [None]
  - Off label use [None]
  - Hypomagnesaemia [None]
  - Torsade de pointes [None]
